FAERS Safety Report 19372800 (Version 1)
Quarter: 2021Q2

REPORT INFORMATION
  Report Type: Spontaneous
  Country: US (occurrence: US)
  Receive Date: 20210603
  Receipt Date: 20210603
  Transmission Date: 20210717
  Serious: No
  Sender: FDA-Public Use
  Company Number: None

PATIENT
  Age: 35 Year
  Sex: Male
  Weight: 78.8 kg

DRUGS (1)
  1. BALSALAZIDE [Suspect]
     Active Substance: BALSALAZIDE
     Indication: COLITIS ULCERATIVE
     Dosage: ?          QUANTITY:270 CAPSULE(S);?
     Route: 048

REACTIONS (2)
  - Dry skin [None]
  - Skin laceration [None]

NARRATIVE: CASE EVENT DATE: 20210603
